FAERS Safety Report 20440419 (Version 3)
Quarter: 2022Q4

REPORT INFORMATION
  Report Type: Spontaneous
  Country: JP (occurrence: JP)
  Receive Date: 20220207
  Receipt Date: 20221209
  Transmission Date: 20230113
  Serious: Yes (Death, Other)
  Sender: FDA-Public Use
  Company Number: JP-ELI_LILLY_AND_COMPANY-JP202201012085

PATIENT
  Age: 78 Year
  Sex: Male

DRUGS (4)
  1. NECITUMUMAB [Suspect]
     Active Substance: NECITUMUMAB
     Indication: Squamous cell carcinoma of lung
     Dosage: 800 MG, UNKNOWN
     Route: 041
     Dates: start: 20220107, end: 20220406
  2. GEMCITABINE HYDROCHLORIDE [Suspect]
     Active Substance: GEMCITABINE HYDROCHLORIDE
     Indication: Squamous cell carcinoma of lung
     Dosage: 1250 MG/M2, UNKNOWN
     Route: 041
     Dates: start: 20220107, end: 20220204
  3. CISPLATIN [Suspect]
     Active Substance: CISPLATIN
     Indication: Squamous cell carcinoma of lung
     Dosage: 75 MG/M2, UNKNOWN
     Route: 041
     Dates: start: 20220107, end: 20220204
  4. CISPLATIN [Suspect]
     Active Substance: CISPLATIN
     Dosage: UNK
     Route: 041
     Dates: start: 20220204, end: 20220406

REACTIONS (6)
  - Hypomagnesaemia [Fatal]
  - Malignant neoplasm progression [Fatal]
  - Neutropenia [Recovering/Resolving]
  - Platelet count decreased [Recovering/Resolving]
  - Aspartate aminotransferase increased [Recovered/Resolved]
  - Alanine aminotransferase increased [Recovered/Resolved]

NARRATIVE: CASE EVENT DATE: 20220113
